FAERS Safety Report 16162983 (Version 2)
Quarter: 2019Q2

REPORT INFORMATION
  Report Type: Spontaneous
  Country: US (occurrence: US)
  Receive Date: 20190405
  Receipt Date: 20190409
  Transmission Date: 20190711
  Serious: No
  Sender: FDA-Public Use
  Company Number: US-BAYER-2019-068761

PATIENT
  Age: 25 Year
  Sex: Female
  Weight: 73 kg

DRUGS (2)
  1. CLARITIN [Suspect]
     Active Substance: LORATADINE
     Indication: ALLERGIC RESPIRATORY SYMPTOM
     Dosage: 1 DF, QD
     Route: 048
     Dates: start: 20190403, end: 20190404
  2. CLARITIN [Suspect]
     Active Substance: LORATADINE
     Indication: NASOPHARYNGITIS

REACTIONS (4)
  - Photosensitivity reaction [Unknown]
  - Pyrexia [Unknown]
  - Parosmia [Unknown]
  - Vomiting [Unknown]

NARRATIVE: CASE EVENT DATE: 20190404
